FAERS Safety Report 21095593 (Version 5)
Quarter: 2022Q4

REPORT INFORMATION
  Report Type: Spontaneous
  Country: IN (occurrence: IN)
  Receive Date: 20220718
  Receipt Date: 20221014
  Transmission Date: 20230113
  Serious: Yes (Other)
  Sender: FDA-Public Use
  Company Number: IN-NOVARTISPH-NVSC2022IN161783

PATIENT
  Sex: Female

DRUGS (8)
  1. BSS [Suspect]
     Active Substance: CALCIUM CHLORIDE\MAGNESIUM CHLORIDE\POTASSIUM CHLORIDE\SODIUM ACETATE\SODIUM CHLORIDE\SODIUM CITRATE
     Indication: Cataract operation
     Dosage: UNK (IRRIGATION SOLUTION )
     Route: 047
     Dates: start: 20220630
  2. MOXIFLOXACIN [Suspect]
     Active Substance: MOXIFLOXACIN
     Indication: Postoperative care
     Dosage: UNK, QID
     Route: 065
  3. TROPICAMIDE [Suspect]
     Active Substance: TROPICAMIDE
     Indication: Postoperative care
     Dosage: UNK, QD
     Route: 047
  4. POVIDONE [Suspect]
     Active Substance: POVIDONE
     Indication: Preoperative care
     Dosage: 5 % (3 TIMES EVERY 5 MINUTES)
     Route: 065
  5. POVIDONE [Suspect]
     Active Substance: POVIDONE
     Dosage: 10 % (VIA SKIN)
     Route: 061
  6. POVIDONE [Suspect]
     Active Substance: POVIDONE
     Dosage: 10 %
     Route: 061
  7. DIFLUPREDNATE [Suspect]
     Active Substance: DIFLUPREDNATE
     Indication: Postoperative care
     Dosage: UNK, QID
     Route: 065
  8. ALBUTEROL [Concomitant]
     Active Substance: ALBUTEROL
     Indication: Chronic obstructive pulmonary disease
     Dosage: UNK
     Route: 065

REACTIONS (3)
  - Endophthalmitis [Not Recovered/Not Resolved]
  - Blindness unilateral [Not Recovered/Not Resolved]
  - Multiple use of single-use product [Not Recovered/Not Resolved]

NARRATIVE: CASE EVENT DATE: 20220702
